FAERS Safety Report 6472385-6 (Version None)
Quarter: 2009Q4

REPORT INFORMATION
  Report Type: 
  Country: None (occurrence: None)
  Receive Date: 20091201
  Receipt Date: 20091117
  Transmission Date: 20100525
  Serious: Yes (Other)
  Sender: FDA-Public Use
  Company Number: CIP09003188

PATIENT
  Sex: Female

DRUGS (6)
  1. FURADANTIN [Suspect]
     Dosage: ORAL
     Route: 048
     Dates: start: 20091001
  2. GENTAMICIN SULFATE [Suspect]
     Indication: URINARY TRACT INFECTION PSEUDOMONAL
     Dosage: 80 MG DAILY
     Dates: start: 20090828, end: 20090901
  3. MICONAZOLE NITRATE [Suspect]
  4. AMYCOR /00806601/ (BIFONAZOLE) [Suspect]
  5. HOMEOPATIC PREPARATION (COLIBACILLUM) [Concomitant]
  6. CRANBERRY /01512301/ (VACCINIUM MACROCARPON) [Concomitant]

REACTIONS (3)
  - ABORTION INDUCED [None]
  - DRUG EXPOSURE DURING PREGNANCY [None]
  - OLIGOHYDRAMNIOS [None]
